FAERS Safety Report 14148407 (Version 1)
Quarter: 2017Q4

REPORT INFORMATION
  Report Type: Spontaneous
  Country: US (occurrence: None)
  Receive Date: 20171031
  Receipt Date: 20171031
  Transmission Date: 20180321
  Serious: Yes (Hospitalization)
  Sender: FDA-Public Use
  Company Number: None

PATIENT
  Age: 59 Year
  Sex: Male

DRUGS (12)
  1. ASPIRIN. [Concomitant]
     Active Substance: ASPIRIN
  2. NORVASC [Concomitant]
     Active Substance: AMLODIPINE BESYLATE
  3. MAGNESIUM OXIDE. [Concomitant]
     Active Substance: MAGNESIUM OXIDE
  4. GABAPENTIN. [Concomitant]
     Active Substance: GABAPENTIN
  5. SPIRONOLACT [Concomitant]
     Active Substance: SPIRONOLACTONE
  6. COLCHICINE. [Concomitant]
     Active Substance: COLCHICINE
  7. ENBREL [Suspect]
     Active Substance: ETANERCEPT
     Indication: RHEUMATOID ARTHRITIS
     Route: 058
     Dates: start: 20130213
  8. METHOTREXATE. [Concomitant]
     Active Substance: METHOTREXATE
  9. OLMESA [Concomitant]
  10. INDOMETHACIN. [Concomitant]
     Active Substance: INDOMETHACIN
  11. FOLIC ACID. [Concomitant]
     Active Substance: FOLIC ACID
  12. LIPITOR [Concomitant]
     Active Substance: ATORVASTATIN CALCIUM

REACTIONS (3)
  - Sepsis [None]
  - Drug dose omission [None]
  - Rheumatoid arthritis [None]

NARRATIVE: CASE EVENT DATE: 201710
